FAERS Safety Report 4527212-0 (Version None)
Quarter: 2004Q4

REPORT INFORMATION
  Report Type: 
  Country: None (occurrence: None)
  Receive Date: 20041215
  Receipt Date: 20041018
  Transmission Date: 20050328
  Serious: Yes (Death, Other)
  Sender: FDA-Public Use
  Company Number: PHRM2004FR03124

PATIENT
  Age: 36 Year
  Sex: Male

DRUGS (8)
  1. ARTANE [Suspect]
     Indication: PSYCHOTIC DISORDER
     Dosage: 15 MG, DAILY
     Route: 048
     Dates: start: 20040706, end: 20041014
  2. RIVOTRIL [Concomitant]
     Indication: PSYCHOTIC DISORDER
     Dosage: 4 MG, DAILY
     Route: 048
     Dates: start: 20041005, end: 20041014
  3. DAFLON [Concomitant]
  4. FUCIDINE CAP [Concomitant]
  5. LEPONEX [Suspect]
     Indication: BIPOLAR I DISORDER
     Dosage: 400 MG, DAILY
     Route: 048
     Dates: start: 20040613, end: 20041012
  6. CLOPIXOL [Suspect]
     Indication: BIPOLAR I DISORDER
     Dosage: 200 MG, DAILY
     Route: 048
     Dates: start: 20040706, end: 20041014
  7. DEPAKOTE [Suspect]
     Indication: BIPOLAR I DISORDER
     Dosage: 2.5 G DAILY
     Route: 048
     Dates: start: 20040608, end: 20041012
  8. LOXAPAC [Suspect]
     Indication: BIPOLAR I DISORDER
     Dosage: 300 MG, DAILY
     Route: 048
     Dates: start: 20041001, end: 20041009

REACTIONS (11)
  - ABDOMINAL DISTENSION [None]
  - ABDOMINAL PAIN [None]
  - ABDOMINAL RIGIDITY [None]
  - BALANCE DISORDER [None]
  - CONSTIPATION [None]
  - DYSPHAGIA [None]
  - FAECALOMA [None]
  - INTESTINAL OBSTRUCTION [None]
  - SALIVARY HYPERSECRETION [None]
  - SPEECH DISORDER [None]
  - VOMITING [None]
